FAERS Safety Report 6794692-X (Version None)
Quarter: 2010Q2

REPORT INFORMATION
  Report Type: 
  Country: None (occurrence: None)
  Receive Date: 20100625
  Receipt Date: 20100611
  Transmission Date: 20101027
  Serious: No
  Sender: FDA-Public Use
  Company Number: US-B.I. PHARMACEUTICALS,INC./RIDGEFIELD-2010-BP-06643BP

PATIENT
  Age: 63 Year
  Sex: Female

DRUGS (2)
  1. AGGRENOX [Suspect]
     Indication: TRANSIENT ISCHAEMIC ATTACK
     Route: 048
     Dates: start: 20100526, end: 20100601
  2. SERTRALINE HCL [Concomitant]
     Indication: DEPRESSION

REACTIONS (3)
  - DIZZINESS [None]
  - SOMNOLENCE [None]
  - VERTIGO [None]
